FAERS Safety Report 16369643 (Version 1)
Quarter: 2019Q2

REPORT INFORMATION
  Report Type: Spontaneous
  Country: HR (occurrence: HR)
  Receive Date: 20190530
  Receipt Date: 20190530
  Transmission Date: 20190711
  Serious: Yes (Other)
  Sender: FDA-Public Use
  Company Number: PHHY2019HR124356

PATIENT
  Age: 40 Year
  Sex: Female

DRUGS (15)
  1. ERGOTAMINE [Suspect]
     Active Substance: CAFFEINE\ERGOTAMINE\ERGOTAMINE TARTRATE
     Indication: HEADACHE
     Dosage: 5-8 TABLETS
     Route: 065
  2. PROPRANOLOL [Suspect]
     Active Substance: PROPRANOLOL HYDROCHLORIDE
     Indication: HEADACHE
     Dosage: 20 MG, UNK
     Route: 065
     Dates: start: 2014
  3. RIZATRIPTAN. [Suspect]
     Active Substance: RIZATRIPTAN
     Indication: HEADACHE
     Dosage: 2 DF, UNK
     Route: 065
  4. PROPRANOLOL [Suspect]
     Active Substance: PROPRANOLOL HYDROCHLORIDE
     Dosage: 120 MG, UNK
     Route: 065
  5. CAFFETIN [CAFFEINE;CODEINE PHOSPHATE SESQUIHYDRATE;PARACETAMOL;PROPYPH [Suspect]
     Active Substance: ACETAMINOPHEN\CAFFEINE\CODEINE\PROPYPHENAZONE
     Indication: HEADACHE
     Dosage: 3 OT, UNK
     Route: 065
     Dates: start: 2014
  6. RELPAX [Suspect]
     Active Substance: ELETRIPTAN HYDROBROMIDE
     Indication: HEADACHE
     Dosage: UNK
     Route: 065
     Dates: start: 2018
  7. ELETRIPTAN. [Suspect]
     Active Substance: ELETRIPTAN
     Indication: HEADACHE
     Dosage: 6 DF, UNK
     Route: 065
  8. AMYZOL [Suspect]
     Active Substance: AMITRIPTYLINE
     Indication: HEADACHE
     Dosage: 100 MG, UNK
     Route: 065
     Dates: start: 2015, end: 2017
  9. PROPRANOLOL [Suspect]
     Active Substance: PROPRANOLOL HYDROCHLORIDE
     Dosage: 40 MG, UNK
     Route: 065
  10. MAXALT [Suspect]
     Active Substance: RIZATRIPTAN BENZOATE
     Indication: HEADACHE
     Dosage: UNK
     Route: 065
     Dates: start: 2014
  11. CAFERGOT [Suspect]
     Active Substance: CAFFEINE\ERGOTAMINE TARTRATE
     Indication: HEADACHE
     Dosage: 1 OT, UNK
     Route: 065
     Dates: start: 2014
  12. CAFFETIN [CAFFEINE;CODEINE PHOSPHATE SESQUIHYDRATE;PARACETAMOL;PROPYPH [Suspect]
     Active Substance: ACETAMINOPHEN\CAFFEINE\CODEINE\PROPYPHENAZONE
     Dosage: 10-15 TABLETS, QMO
     Route: 065
     Dates: start: 2018
  13. SUMATRIPTAN. [Suspect]
     Active Substance: SUMATRIPTAN
     Indication: HEADACHE
     Dosage: UNK
     Route: 065
  14. PLIVADON (CAFFEINE/PHENACETIN/PROPYPHENAZONE) [Suspect]
     Active Substance: CAFFEINE\PHENACETIN\PROPYPHENAZONE
     Indication: HEADACHE
     Dosage: 2 OT, UNK
     Route: 065
     Dates: start: 2014
  15. ZOMIG [Suspect]
     Active Substance: ZOLMITRIPTAN
     Indication: HEADACHE
     Dosage: 2-3 TABLETS
     Route: 065
     Dates: start: 2017

REACTIONS (3)
  - Drug dependence [Unknown]
  - Medication overuse headache [Unknown]
  - Drug ineffective [Unknown]
